FAERS Safety Report 18406746 (Version 1)
Quarter: 2020Q4

REPORT INFORMATION
  Report Type: Spontaneous
  Country: CZ (occurrence: CZ)
  Receive Date: 20201021
  Receipt Date: 20201021
  Transmission Date: 20210114
  Serious: Yes (Other)
  Sender: FDA-Public Use
  Company Number: CZ-TEVA-2020-CZ-1838090

PATIENT
  Sex: Male

DRUGS (3)
  1. OXALIPLATIN. [Suspect]
     Active Substance: OXALIPLATIN
     Indication: APPENDIX CANCER
     Dosage: 3 CYCLES OF FOLFOX-4
     Route: 065
     Dates: start: 20121122
  2. FOLINIC ACID [Suspect]
     Active Substance: LEUCOVORIN
     Indication: APPENDIX CANCER
     Dosage: 3 CYCLES OF FOLFOX-4
     Route: 065
     Dates: start: 20121122
  3. FLUOROURACIL. [Suspect]
     Active Substance: FLUOROURACIL
     Indication: APPENDIX CANCER
     Route: 065
     Dates: start: 20121122

REACTIONS (3)
  - Drug intolerance [Recovered/Resolved]
  - Haematotoxicity [Recovered/Resolved]
  - General physical health deterioration [Recovering/Resolving]
